FAERS Safety Report 14240210 (Version 1)
Quarter: 2017Q4

REPORT INFORMATION
  Report Type: Spontaneous
  Country: US (occurrence: US)
  Receive Date: 20171129
  Receipt Date: 20171129
  Transmission Date: 20180321
  Serious: No
  Sender: FDA-Public Use
  Company Number: None

PATIENT
  Weight: 42.5 kg

DRUGS (1)
  1. RUGBY BENZOYL PEROXIDE ACNE MEDICATION [Suspect]
     Active Substance: BENZOYL PEROXIDE
     Indication: ACNE
     Route: 061
     Dates: start: 20151121, end: 20171009

REACTIONS (1)
  - Product label issue [None]

NARRATIVE: CASE EVENT DATE: 20171006
